FAERS Safety Report 5118564-1 (Version None)
Quarter: 2006Q3

REPORT INFORMATION
  Report Type: 
  Country: None (occurrence: None)
  Receive Date: 20060927
  Receipt Date: 20060913
  Transmission Date: 20061208
  Serious: Yes (Hospitalization)
  Sender: FDA-Public Use
  Company Number: 229856

PATIENT
  Age: 67 Year
  Sex: Female
  Weight: 65 kg

DRUGS (5)
  1. MABTHERA            (RITUXIMAB) [Suspect]
     Indication: CHRONIC LYMPHOCYTIC LEUKAEMIA
     Dosage: 860 MG, UNK, INTRAVENOUS
     Route: 042
     Dates: start: 20060621
  2. CYCLOPHOSPHAMIDE [Suspect]
     Indication: CHRONIC LYMPHOCYTIC LEUKAEMIA
     Dosage: 430 MG, UNK, INTRAVENOUS
     Route: 042
     Dates: start: 20060622
  3. FLUDARABINE PHOSPHATE [Suspect]
     Indication: CHRONIC LYMPHOCYTIC LEUKAEMIA
     Dosage: 43 MG, UNK, INTRAVENOUS
     Route: 042
  4. PANTOPRAZOLE SODIUM [Concomitant]
  5. MEDICATION (UNK INGREDIENT) [Concomitant]

REACTIONS (4)
  - APLASIA [None]
  - C-REACTIVE PROTEIN INCREASED [None]
  - PYREXIA [None]
  - WHITE BLOOD CELL COUNT DECREASED [None]
